FAERS Safety Report 17461396 (Version 1)
Quarter: 2020Q1

REPORT INFORMATION
  Report Type: Report from Study
  Country: None (occurrence: US)
  Receive Date: 20200226
  Receipt Date: 20200226
  Transmission Date: 20200409
  Serious: Yes (Other)
  Sender: FDA-Public Use
  Company Number: US-ABBVIE-19K-163-3197679-00

PATIENT
  Sex: Female
  Weight: 66.74 kg

DRUGS (1)
  1. HUMIRA [Suspect]
     Active Substance: ADALIMUMAB
     Indication: RHEUMATOID ARTHRITIS
     Route: 058
     Dates: end: 201912

REACTIONS (5)
  - Joint arthroplasty [Unknown]
  - Fungal infection [Unknown]
  - Upper respiratory tract infection [Unknown]
  - Carpal tunnel syndrome [Unknown]
  - Arthritis [Not Recovered/Not Resolved]

NARRATIVE: CASE EVENT DATE: 2019
